FAERS Safety Report 4455857-5 (Version None)
Quarter: 2004Q3

REPORT INFORMATION
  Report Type: 
  Country: None (occurrence: None)
  Receive Date: 20040922
  Receipt Date: 20040907
  Transmission Date: 20050211
  Serious: Yes (Life-Threatening, Hospitalization, Other)
  Sender: FDA-Public Use
  Company Number: GB-MERCK-0409GBR00063

PATIENT
  Age: 52 Year
  Sex: Female

DRUGS (3)
  1. ALBUTEROL [Concomitant]
     Route: 055
  2. FLUTICASONE PROPIONATE AND SALMETEROL XINAFOATE [Concomitant]
     Indication: ASTHMA
     Route: 055
     Dates: start: 20020101
  3. SINGULAIR [Suspect]
     Indication: ASTHMA
     Route: 048
     Dates: start: 20010101, end: 20040708

REACTIONS (1)
  - ALLERGIC GRANULOMATOUS ANGIITIS [None]
